FAERS Safety Report 4989534-9 (Version None)
Quarter: 2006Q2

REPORT INFORMATION
  Report Type: 
  Country: None (occurrence: None)
  Receive Date: 20060502
  Receipt Date: 20060412
  Transmission Date: 20061013
  Serious: Yes (Hospitalization)
  Sender: FDA-Public Use
  Company Number: US-MERCK-0604USA02433

PATIENT
  Age: 67 Year
  Sex: Male
  Weight: 86 kg

DRUGS (24)
  1. VIOXX [Suspect]
     Indication: RHEUMATOID ARTHRITIS
     Route: 048
     Dates: start: 20000617, end: 20040901
  2. VIOXX [Suspect]
     Route: 048
     Dates: start: 20040401, end: 20041001
  3. VIOXX [Suspect]
     Route: 048
     Dates: start: 20000617, end: 20040901
  4. LOPRESSOR [Concomitant]
     Route: 065
  5. LOPRESSOR [Concomitant]
     Route: 065
  6. ASPIRIN [Concomitant]
     Indication: CARDIAC DISORDER
     Route: 065
  7. METFORMIN [Concomitant]
     Indication: DIABETES MELLITUS
     Route: 065
  8. LIPITOR [Concomitant]
     Indication: BLOOD TRIGLYCERIDES INCREASED
     Route: 065
  9. LOCHOLEST [Concomitant]
     Route: 065
  10. PLETAL [Concomitant]
     Route: 065
  11. PREVACID [Concomitant]
     Route: 065
  12. PREDNISONE [Concomitant]
     Route: 065
  13. ROBINOL [Concomitant]
     Route: 065
  14. FUROSEMIDE [Concomitant]
     Route: 065
  15. LORAZEPAN [Concomitant]
     Route: 065
  16. POTASSIUM (UNSPECIFIED) [Concomitant]
     Route: 065
  17. COUMADIN [Concomitant]
     Route: 065
     Dates: start: 20021101, end: 20021111
  18. NEURONTIN [Concomitant]
     Route: 065
  19. AMITRIPTYLINE HYDROCHLORIDE [Concomitant]
     Route: 065
  20. CARISOPRODOL [Concomitant]
     Route: 065
  21. URECHOLINE [Concomitant]
     Route: 048
  22. COLCHICINE [Concomitant]
     Route: 065
  23. NEXIUM [Concomitant]
     Route: 065
  24. MOBIC [Concomitant]
     Route: 065

REACTIONS (33)
  - ANXIETY [None]
  - AORTIC ANEURYSM [None]
  - AORTIC VALVE DISEASE [None]
  - ARRHYTHMIA [None]
  - BLOOD TRIGLYCERIDES INCREASED [None]
  - BURSITIS [None]
  - CARDIAC MURMUR [None]
  - CORONARY ARTERY DISEASE [None]
  - DEPRESSION [None]
  - DIABETIC NEUROPATHY [None]
  - DRUG INEFFECTIVE [None]
  - DYSLIPIDAEMIA [None]
  - DYSPEPSIA [None]
  - ENTERITIS [None]
  - FALL [None]
  - HAEMATURIA [None]
  - HYPERTENSION [None]
  - HYPOKALAEMIA [None]
  - HYPOMAGNESAEMIA [None]
  - INSOMNIA [None]
  - LUMBAR RADICULOPATHY [None]
  - NEUROPATHY PERIPHERAL [None]
  - NOCTURIA [None]
  - OEDEMA PERIPHERAL [None]
  - OSTEOARTHRITIS [None]
  - PALPITATIONS [None]
  - PERIODIC LIMB MOVEMENT DISORDER [None]
  - RHEUMATOID ARTHRITIS [None]
  - SLEEP APNOEA SYNDROME [None]
  - SPINAL CORD COMPRESSION [None]
  - SYNCOPE [None]
  - TRANSIENT ISCHAEMIC ATTACK [None]
  - WOUND [None]
